FAERS Safety Report 7078431-3 (Version None)
Quarter: 2010Q4

REPORT INFORMATION
  Report Type: 
  Country: None (occurrence: None)
  Receive Date: 20101101
  Receipt Date: 20101101
  Transmission Date: 20110411
  Serious: Yes (Other)
  Sender: FDA-Public Use
  Company Number: None

PATIENT
  Sex: Female

DRUGS (1)
  1. FENTANYL [Suspect]
     Indication: PAIN
     Dosage: APPLY 1 PATCH EVERY 24 HOURS
     Dates: start: 20100915

REACTIONS (2)
  - DEVICE BREAKAGE [None]
  - OVERDOSE [None]
